FAERS Safety Report 16964040 (Version 1)
Quarter: 2019Q4

REPORT INFORMATION
  Report Type: Report from Study
  Country: JP (occurrence: JP)
  Receive Date: 20191026
  Receipt Date: 20191026
  Transmission Date: 20200122
  Serious: Yes (Death)
  Sender: FDA-Public Use
  Company Number: JP-INGENUS PHARMACEUTICALS, LLC-2019INF000361

PATIENT

DRUGS (4)
  1. CARBOPLATIN. [Suspect]
     Active Substance: CARBOPLATIN
     Indication: NON-SMALL CELL LUNG CANCER
     Dosage: AREA UNDER THE CURVE 6, DAY 1, EVERY 3 WEEKS FOR FOUR CYCLES
     Route: 065
  2. NAB-PACLITAXEL [Suspect]
     Active Substance: PACLITAXEL
     Indication: INTERSTITIAL LUNG DISEASE
  3. CARBOPLATIN. [Suspect]
     Active Substance: CARBOPLATIN
     Indication: INTERSTITIAL LUNG DISEASE
  4. NAB-PACLITAXEL [Suspect]
     Active Substance: PACLITAXEL
     Indication: NON-SMALL CELL LUNG CANCER
     Dosage: 100 MILLIGRAM/SQ. METER, DAYS 1,8,15, EVERY 3 WEEKS FOR FOUR CYCLES
     Route: 065

REACTIONS (1)
  - Pneumonia [Fatal]
